FAERS Safety Report 16468802 (Version 3)
Quarter: 2019Q3

REPORT INFORMATION
  Report Type: Report from Study
  Country: NL (occurrence: NL)
  Receive Date: 20190624
  Receipt Date: 20190709
  Transmission Date: 20191004
  Serious: Yes (Hospitalization)
  Sender: FDA-Public Use
  Company Number: GB-SA-2019SA170100

PATIENT
  Age: 59 Year
  Sex: Female
  Weight: 86.7 kg

DRUGS (2)
  1. CABAZITAXEL [Suspect]
     Active Substance: CABAZITAXEL
     Indication: LIPOSARCOMA METASTATIC
     Dosage: 50.00 MG, Q3W
     Route: 042
     Dates: start: 20180816, end: 20180816
  2. CABAZITAXEL [Suspect]
     Active Substance: CABAZITAXEL
     Dosage: 50.00 MG, Q3W
     Route: 042
     Dates: start: 20190606, end: 20190606

REACTIONS (2)
  - Erysipelas [Not Recovered/Not Resolved]
  - Erysipelas [Not Recovered/Not Resolved]

NARRATIVE: CASE EVENT DATE: 20190617
